FAERS Safety Report 7214279-4 (Version None)
Quarter: 2011Q1

REPORT INFORMATION
  Report Type: 
  Country: None (occurrence: None)
  Receive Date: 20110107
  Receipt Date: 20101230
  Transmission Date: 20110831
  Serious: Yes (Other)
  Sender: FDA-Public Use
  Company Number: CA-JNJFOC-20110100663

PATIENT
  Age: 37 Year
  Sex: Male
  Weight: 88.45 kg

DRUGS (5)
  1. OXAZEPAM [Concomitant]
     Indication: INSOMNIA
     Route: 065
  2. BENZTROPINE MESYLATE [Concomitant]
     Indication: ILL-DEFINED DISORDER
     Route: 065
  3. LORAZEPAM [Concomitant]
     Indication: AGITATION
     Route: 065
  4. RISPERDAL CONSTA [Suspect]
     Indication: SCHIZOPHRENIA
     Route: 030
  5. HALIDOL [Suspect]
     Indication: AGITATION
     Route: 065

REACTIONS (9)
  - MYOCARDIAL INFARCTION [None]
  - DELUSION [None]
  - INFLUENZA LIKE ILLNESS [None]
  - CHEST PAIN [None]
  - HYPERTENSION [None]
  - HYPERHIDROSIS [None]
  - HEART RATE INCREASED [None]
  - EPISTAXIS [None]
  - PAIN [None]
